FAERS Safety Report 4401071-9 (Version None)
Quarter: 2004Q3

REPORT INFORMATION
  Report Type: 
  Country: None (occurrence: None)
  Receive Date: 20040907
  Receipt Date: 20031016
  Transmission Date: 20050211
  Serious: Yes (Hospitalization)
  Sender: FDA-Public Use
  Company Number: US-BRISTOL-MYERS SQUIBB COMPANY-12412037

PATIENT
  Age: 78 Year
  Sex: Female
  Weight: 57 kg

DRUGS (1)
  1. COUMADIN [Suspect]
     Indication: CARDIAC PACEMAKER INSERTION
     Dosage: PRESENT DOSE:  2MG/DAY (TWO 1-MG TABLETS).
     Route: 048
     Dates: start: 20030723

REACTIONS (4)
  - ASTHENIA [None]
  - DYSPNOEA [None]
  - FAECES DISCOLOURED [None]
  - INTERNATIONAL NORMALISED RATIO ABNORMAL [None]
